APPROVED DRUG PRODUCT: NARATRIPTAN
Active Ingredient: NARATRIPTAN HYDROCHLORIDE
Strength: EQ 1MG BASE
Dosage Form/Route: TABLET;ORAL
Application: A091441 | Product #001 | TE Code: AB
Applicant: ORBION PHARMACEUTICALS PRIVATE LTD
Approved: Apr 30, 2012 | RLD: No | RS: No | Type: RX